FAERS Safety Report 19990490 (Version 1)
Quarter: 2021Q4

REPORT INFORMATION
  Report Type: Spontaneous
  Country: US (occurrence: US)
  Receive Date: 20211023
  Receipt Date: 20211023
  Transmission Date: 20220303
  Serious: Yes (Hospitalization)
  Sender: FDA-Public Use
  Company Number: None

PATIENT
  Age: 49 Year
  Sex: Female

DRUGS (2)
  1. CAPECITABINE [Suspect]
     Active Substance: CAPECITABINE
     Route: 048
     Dates: start: 202110
  2. OXALIPLATIN [Suspect]
     Active Substance: OXALIPLATIN

REACTIONS (4)
  - Joint stiffness [None]
  - Chills [None]
  - Hypoaesthesia oral [None]
  - Musculoskeletal stiffness [None]

NARRATIVE: CASE EVENT DATE: 20211007
